FAERS Safety Report 21433544 (Version 1)
Quarter: 2022Q4

REPORT INFORMATION
  Report Type: Spontaneous
  Country: US (occurrence: US)
  Receive Date: 20221010
  Receipt Date: 20221010
  Transmission Date: 20230113
  Serious: Yes (Other)
  Sender: FDA-Public Use
  Company Number: US-LUPIN PHARMACEUTICALS INC.-2022-11730

PATIENT
  Age: 29 Year
  Sex: Male

DRUGS (4)
  1. MOXIFLOXACIN [Suspect]
     Active Substance: MOXIFLOXACIN
     Indication: Acanthamoeba keratitis
     Dosage: UNK UNK, QID
     Route: 065
  2. ACYCLOVIR [Suspect]
     Active Substance: ACYCLOVIR
     Indication: Acanthamoeba keratitis
     Dosage: UNK
     Route: 048
  3. POLIHEXANIDE HYDROCHLORIDE [Suspect]
     Active Substance: POLIHEXANIDE HYDROCHLORIDE
     Indication: Acanthamoeba keratitis
     Dosage: UNK (0.02% Q1H)
     Route: 065
  4. PROPAMIDINE [Suspect]
     Active Substance: PROPAMIDINE
     Indication: Acanthamoeba keratitis
     Dosage: UNK UNK, QID
     Route: 065

REACTIONS (2)
  - Drug ineffective for unapproved indication [Unknown]
  - Off label use [Unknown]
